FAERS Safety Report 7701324-2 (Version None)
Quarter: 2011Q3

REPORT INFORMATION
  Report Type: 
  Country: None (occurrence: None)
  Receive Date: 20110822
  Receipt Date: 20110811
  Transmission Date: 20111222
  Serious: Yes (Death)
  Sender: FDA-Public Use
  Company Number: US-ELI_LILLY_AND_COMPANY-US201108004036

PATIENT
  Age: 20 Year
  Sex: Female

DRUGS (5)
  1. LEVOPHED [Concomitant]
     Dosage: UNK, UNKNOWN
     Route: 065
  2. VANCOMYCIN [Concomitant]
     Dosage: UNK, UNKNOWN
     Route: 065
  3. XIGRIS [Suspect]
     Indication: SEPTIC SHOCK
     Dosage: 25 MG, UNK
     Dates: start: 20110810, end: 20110810
  4. ROCEPHIN [Concomitant]
     Dosage: UNK, UNKNOWN
     Route: 065
  5. DOPAMINE HCL [Concomitant]
     Dosage: UNK, UNKNOWN
     Route: 065

REACTIONS (1)
  - DEATH [None]
